FAERS Safety Report 18394837 (Version 2)
Quarter: 2021Q1

REPORT INFORMATION
  Report Type: Spontaneous
  Country: US (occurrence: US)
  Receive Date: 20201016
  Receipt Date: 20210113
  Transmission Date: 20210419
  Serious: No
  Sender: FDA-Public Use
  Company Number: US-GLENMARK PHARMACEUTICALS-2020GMK049768

PATIENT

DRUGS (2)
  1. KETOCONAZOLE. [Concomitant]
     Active Substance: KETOCONAZOLE
     Indication: PRODUCT USED FOR UNKNOWN INDICATION
     Dosage: UNK
     Route: 065
  2. CLOBETASOL PROPIONATE SPRAY, 0.05% [Suspect]
     Active Substance: CLOBETASOL PROPIONATE
     Indication: SEBORRHOEIC DERMATITIS
     Dosage: UNK
     Route: 061
     Dates: start: 20200901, end: 20200906

REACTIONS (7)
  - Burning sensation [Recovered/Resolved]
  - Seborrhoeic dermatitis [Recovered/Resolved]
  - Product use in unapproved indication [Unknown]
  - Product physical consistency issue [Unknown]
  - Condition aggravated [Recovered/Resolved]
  - Accidental exposure to product [Unknown]
  - Pain [Recovered/Resolved]

NARRATIVE: CASE EVENT DATE: 202009
